FAERS Safety Report 9144171 (Version 3)
Quarter: 2013Q2

REPORT INFORMATION
  Report Type: Report from Study
  Country: DE (occurrence: DE)
  Receive Date: 20130306
  Receipt Date: 20130401
  Transmission Date: 20140414
  Serious: Yes (Hospitalization)
  Sender: FDA-Public Use
  Company Number: DE-VERTEX PHARMACEUTICALS INC.-2013-003068

PATIENT
  Age: 74 Year
  Sex: Female
  Weight: 53 kg

DRUGS (5)
  1. VX-950 (TELAPREVIR) [Suspect]
     Indication: CHRONIC HEPATITIS C
     Dosage: 2250 MG, UNK
     Route: 048
     Dates: start: 20120302, end: 20130516
  2. PEGASYS [Suspect]
     Indication: CHRONIC HEPATITIS C
     Dosage: DOSAGE FORM: UNSPECIFIED
     Route: 058
     Dates: start: 20120713, end: 20120730
  3. PEGASYS [Suspect]
     Dosage: DOSAGE FORM: UNSPECIFIED
     Route: 058
     Dates: start: 20120302, end: 20120712
  4. COPEGUS [Suspect]
     Indication: CHRONIC HEPATITIS C
     Dosage: DOSAGE FORM: UNSPECIFIED
     Route: 048
     Dates: start: 20120302, end: 20120525
  5. COPEGUS [Suspect]
     Dosage: DOSAGE FORM: UNSPECIFIED
     Route: 048
     Dates: start: 20120525, end: 20120730

REACTIONS (3)
  - Organising pneumonia [Recovered/Resolved]
  - Escherichia sepsis [Recovered/Resolved]
  - Lobar pneumonia [Recovered/Resolved]
